FAERS Safety Report 7868519-9 (Version None)
Quarter: 2011Q4

REPORT INFORMATION
  Report Type: 
  Country: None (occurrence: None)
  Receive Date: 20111028
  Receipt Date: 20101213
  Transmission Date: 20120403
  Serious: No
  Sender: FDA-Public Use
  Company Number: US-AMGEN-USASP2010009193

PATIENT
  Age: 39 Year
  Sex: Female

DRUGS (2)
  1. ENBREL [Suspect]
     Indication: RHEUMATOID ARTHRITIS
     Dosage: UNK
     Dates: start: 20070926, end: 20090901
  2. ENBREL [Suspect]
     Indication: PSORIASIS

REACTIONS (3)
  - INJECTION SITE PAIN [None]
  - PSORIASIS [None]
  - INJECTION SITE SWELLING [None]
